FAERS Safety Report 13239918 (Version 1)
Quarter: 2017Q1

REPORT INFORMATION
  Report Type: Spontaneous
  Country: US (occurrence: US)
  Receive Date: 20170216
  Receipt Date: 20170216
  Transmission Date: 20170428
  Serious: No
  Sender: FDA-Public Use
  Company Number: US-PFIZER INC-2017065231

PATIENT
  Sex: Male

DRUGS (2)
  1. MELATONIN [Suspect]
     Active Substance: MELATONIN
  2. EMBEDA [Suspect]
     Active Substance: MORPHINE SULFATE\NALTREXONE HYDROCHLORIDE
     Indication: BACK PAIN

REACTIONS (3)
  - Headache [Unknown]
  - Dizziness [Unknown]
  - Nausea [Unknown]
